FAERS Safety Report 4570781-5 (Version None)
Quarter: 2005Q1

REPORT INFORMATION
  Report Type: 
  Country: None (occurrence: None)
  Receive Date: 20050202
  Receipt Date: 20050117
  Transmission Date: 20050727
  Serious: Yes (Other)
  Sender: FDA-Public Use
  Company Number: FR_041205360

PATIENT
  Age: 50 Year
  Sex: Female
  Weight: 70 kg

DRUGS (4)
  1. ZYPREXA [Suspect]
     Indication: ANXIETY
     Dosage: 10 MG DAY
     Dates: start: 20041103, end: 20041107
  2. NORSET (MIRTAZAPINE ORIFARM) [Concomitant]
  3. LANSOPRAZOLE [Concomitant]
  4. CLONAZEPAM [Concomitant]

REACTIONS (2)
  - ANGIONEUROTIC OEDEMA [None]
  - FACE OEDEMA [None]
